FAERS Safety Report 24352005 (Version 1)
Quarter: 2024Q3

REPORT INFORMATION
  Report Type: Report from Study
  Country: CA (occurrence: CA)
  Receive Date: 20240923
  Receipt Date: 20240923
  Transmission Date: 20241016
  Serious: No
  Sender: ROCHE
  Company Number: CA-ROCHE-3363873

PATIENT
  Age: 53 Year
  Sex: Female
  Weight: 76.0 kg

DRUGS (18)
  1. HERCEPTIN [Suspect]
     Active Substance: TRASTUZUMAB
     Indication: Product used for unknown indication
     Route: 065
  2. PERJETA [Suspect]
     Active Substance: PERTUZUMAB
     Indication: HER2 positive breast cancer
     Dosage: LOADING DOSE
     Route: 042
     Dates: start: 20230515, end: 20230515
  3. PERJETA [Suspect]
     Active Substance: PERTUZUMAB
     Dosage: DRUG DOSE FIRST ADMINISTERED IS 840 MG MILLIGRAM(S)MOREDOSAGEINFO IS LOADING DOSE
     Route: 042
     Dates: start: 20230626, end: 20230821
  4. PERJETA [Suspect]
     Active Substance: PERTUZUMAB
     Dosage: LOADING DOSE
     Route: 042
     Dates: start: 20231023, end: 20231023
  5. PERJETA [Suspect]
     Active Substance: PERTUZUMAB
     Dosage: LOADING DOSE
     Route: 042
     Dates: start: 20231113, end: 20231113
  6. PERJETA [Suspect]
     Active Substance: PERTUZUMAB
     Dosage: LOADING DOSE
     Route: 042
     Dates: start: 20231204
  7. DOXORUBICIN [Concomitant]
     Active Substance: DOXORUBICIN
  8. ACETAMINOPHEN [Concomitant]
     Active Substance: ACETAMINOPHEN
  9. BISACODYL [Concomitant]
     Active Substance: BISACODYL
     Indication: Constipation
  10. BISOPROLOL [Concomitant]
     Active Substance: BISOPROLOL\BISOPROLOL FUMARATE
     Dates: start: 2023
  11. BISOPROLOL [Concomitant]
     Active Substance: BISOPROLOL\BISOPROLOL FUMARATE
     Dates: start: 2023
  12. FLUTICASONE PROPIONATE\SALMETEROL XINAFOATE [Concomitant]
     Active Substance: FLUTICASONE PROPIONATE\SALMETEROL XINAFOATE
     Indication: Asthma
     Route: 055
  13. LETROZOLE [Concomitant]
     Active Substance: LETROZOLE
  14. LOPERAMIDE [Concomitant]
     Active Substance: LOPERAMIDE
     Indication: Diarrhoea
  15. LORATADINE [Concomitant]
     Active Substance: LORATADINE
     Indication: Hypersensitivity
  16. MAGNESIUM CITRATE [Concomitant]
     Active Substance: MAGNESIUM CITRATE
     Route: 048
  17. OLANZAPINE [Concomitant]
     Active Substance: OLANZAPINE
     Indication: Nausea
  18. ALBUTEROL [Concomitant]
     Active Substance: ALBUTEROL
     Indication: Asthma
     Route: 055

REACTIONS (2)
  - Heart rate increased [Unknown]
  - Blood pressure systolic increased [Unknown]

NARRATIVE: CASE EVENT DATE: 20240115
